FAERS Safety Report 8171315-9 (Version None)
Quarter: 2012Q1

REPORT INFORMATION
  Report Type: 
  Country: None (occurrence: None)
  Receive Date: 20120228
  Receipt Date: 20120212
  Transmission Date: 20120608
  Serious: Yes (Hospitalization)
  Sender: FDA-Public Use
  Company Number: US-INCYTE CORPORATION-2012IN000268

PATIENT
  Sex: Female

DRUGS (1)
  1. INCB018424 [Suspect]
     Indication: MYELOPROLIFERATIVE DISORDER
     Dosage: 5 MG, QD
     Route: 048
     Dates: start: 20071130, end: 20110601

REACTIONS (2)
  - PNEUMOTHORAX [None]
  - ARTERIAL THROMBOSIS LIMB [None]
